FAERS Safety Report 6572119-0 (Version None)
Quarter: 2010Q1

REPORT INFORMATION
  Report Type: 
  Country: None (occurrence: None)
  Receive Date: 20100201
  Receipt Date: 20100118
  Transmission Date: 20100710
  Serious: Yes (Disabling, Other)
  Sender: FDA-Public Use
  Company Number: 2010-00115

PATIENT
  Sex: Female

DRUGS (3)
  1. LISINOPRIL [Suspect]
     Indication: PROPHYLAXIS
     Dosage: 40 MG, 2 IN 1 D
     Dates: start: 20060801
  2. LISINOPRIL [Suspect]
     Indication: PROPHYLAXIS
     Dosage: 40 MG, 2 IN 1 D
     Dates: start: 20061101
  3. INSULIN [Concomitant]

REACTIONS (3)
  - JOINT STIFFNESS [None]
  - RENAL FAILURE [None]
  - TREMOR [None]
